FAERS Safety Report 8257990-9 (Version None)
Quarter: 2012Q2

REPORT INFORMATION
  Report Type: 
  Country: None (occurrence: None)
  Receive Date: 20120404
  Receipt Date: 20120322
  Transmission Date: 20120825
  Serious: Yes (Other)
  Sender: FDA-Public Use
  Company Number: DE-JNJFOC-20120400334

PATIENT
  Sex: Male

DRUGS (7)
  1. TRAMADOL HYDROCHLORIDE [Suspect]
     Indication: PRODUCT USED FOR UNKNOWN INDICATION
     Route: 065
  2. TRAMADOL HYDROCHLORIDE [Suspect]
     Route: 065
  3. LEVOMETHADONE [Concomitant]
     Indication: PRODUCT USED FOR UNKNOWN INDICATION
     Route: 065
  4. FUROSEMIDE [Concomitant]
     Indication: PRODUCT USED FOR UNKNOWN INDICATION
     Route: 065
  5. TORSEMIDE [Concomitant]
     Indication: PRODUCT USED FOR UNKNOWN INDICATION
     Route: 065
  6. ACTRAPID [Concomitant]
     Indication: DIABETES MELLITUS
     Route: 065
  7. FENTANYL [Concomitant]
     Indication: PRODUCT USED FOR UNKNOWN INDICATION
     Route: 065

REACTIONS (11)
  - INTENTIONAL OVERDOSE [None]
  - POLYURIA [None]
  - HALLUCINATION, AUDITORY [None]
  - BLOOD GLUCOSE DECREASED [None]
  - EUPHORIC MOOD [None]
  - DECREASED INSULIN REQUIREMENT [None]
  - DISORIENTATION [None]
  - THIRST DECREASED [None]
  - DRUG INTERACTION [None]
  - HYPOGLYCAEMIA [None]
  - DECREASED APPETITE [None]
